FAERS Safety Report 9219996 (Version 1)
Quarter: 2013Q1

REPORT INFORMATION
  Report Type: Spontaneous
  Country: US (occurrence: None)
  Receive Date: 20120831
  Receipt Date: 20120831
  Transmission Date: 20140127
  Serious: No
  Sender: FDA-Public Use
  Company Number: 1000030615

PATIENT
  Age: 57 Year
  Sex: Female

DRUGS (7)
  1. DALIRESP [Suspect]
     Indication: CHRONIC OBSTRUCTIVE PULMONARY DISEASE
     Route: 048
     Dates: start: 201203
  2. ADVAIR(SERETIDE)(SERETIDE) [Concomitant]
  3. SPIRIVA(TIOTROPIUM BROMIDE)(TIOTROPIUM BROMIDE) [Concomitant]
  4. METFORMIN(METFORMIN(METFORMIN) [Concomitant]
  5. DIOVAN(VALSARTAN)(VALSARTAN) [Concomitant]
  6. TRILIPIX(CHOLINE FENOFIBRATE)(CHOLINE FENOFIBRATE) [Concomitant]
  7. WELLBUTRIN (BUPROPION HYDROCHLORIDE) (BUPROPION HYDROCHLORIDE) [Concomitant]

REACTIONS (1)
  - Alopecia [None]
